FAERS Safety Report 9445384 (Version 1)
Quarter: 2013Q3

REPORT INFORMATION
  Report Type: Spontaneous
  Country: US (occurrence: US)
  Receive Date: 20130807
  Receipt Date: 20130807
  Transmission Date: 20140515
  Serious: No
  Sender: FDA-Public Use
  Company Number: US-PFIZER INC-2013229231

PATIENT
  Sex: Female

DRUGS (3)
  1. GABAPENTIN [Suspect]
     Dosage: 100 MG, 1X/DAY
     Dates: start: 20130724, end: 20130804
  2. GABAPENTIN [Suspect]
     Dosage: 200 MG (TAKING TWO 100MG), 1X/DAY
     Dates: start: 20130804, end: 20130805
  3. GABAPENTIN [Suspect]
     Dosage: 100 MG, 1X/DAY
     Dates: start: 20130805

REACTIONS (1)
  - Rash [Unknown]
